FAERS Safety Report 18119101 (Version 2)
Quarter: 2020Q4

REPORT INFORMATION
  Report Type: Spontaneous
  Country: CA (occurrence: CA)
  Receive Date: 20200806
  Receipt Date: 20201022
  Transmission Date: 20210113
  Serious: Yes (Hospitalization, Other)
  Sender: FDA-Public Use
  Company Number: CA-GLAXOSMITHKLINE-CA2020AMR040705

PATIENT
  Age: 57 Year
  Sex: Female

DRUGS (4)
  1. LACOSAMIDE. [Concomitant]
     Active Substance: LACOSAMIDE
     Indication: EPILEPSY
     Dosage: 150 MG, BID
  2. BENLYSTA [Suspect]
     Active Substance: BELIMUMAB
     Indication: SYSTEMIC LUPUS ERYTHEMATOSUS
     Dosage: UNK
     Route: 058
  3. AMOXICILLIN. [Concomitant]
     Active Substance: AMOXICILLIN
     Indication: PROPHYLAXIS
     Dosage: 4 DF, 500 MG
  4. PREDNISONE. [Concomitant]
     Active Substance: PREDNISONE
     Indication: ARTHRITIS
     Dosage: 9 MG

REACTIONS (44)
  - Dyspepsia [Unknown]
  - Skin disorder [Unknown]
  - Tooth abscess [Unknown]
  - Limb injury [Unknown]
  - Depression [Unknown]
  - Tooth infection [Unknown]
  - Lip pain [Unknown]
  - Insomnia [Unknown]
  - Fatigue [Unknown]
  - Morose [Unknown]
  - Anxiety disorder [Unknown]
  - Abdominal pain upper [Unknown]
  - Injection site bruising [Unknown]
  - Gingivitis [Unknown]
  - Gingival disorder [Unknown]
  - Oral pain [Unknown]
  - Tooth extraction [Unknown]
  - Asthenia [Unknown]
  - Social problem [Unknown]
  - Disease susceptibility [Unknown]
  - Tremor [Unknown]
  - Cheilitis [Unknown]
  - Stress [Unknown]
  - Malaise [Unknown]
  - Incorrect dose administered [Unknown]
  - Cardiac arrest [Unknown]
  - Fall [Unknown]
  - Arthritis [Recovering/Resolving]
  - Dental operation [Unknown]
  - Tooth loss [Unknown]
  - Tooth fracture [Unknown]
  - Hypotension [Unknown]
  - Product complaint [Unknown]
  - Hypertension [Unknown]
  - Vein disorder [Unknown]
  - Osteitis [Unknown]
  - Injection site haemorrhage [Unknown]
  - Joint swelling [Recovering/Resolving]
  - Arthralgia [Recovering/Resolving]
  - Erythema [Unknown]
  - Urticaria [Unknown]
  - Blepharospasm [Unknown]
  - Headache [Unknown]
  - Injection site extravasation [Unknown]

NARRATIVE: CASE EVENT DATE: 201911
